FAERS Safety Report 7249874-X (Version None)
Quarter: 2011Q1

REPORT INFORMATION
  Report Type: 
  Country: None (occurrence: None)
  Receive Date: 20110128
  Receipt Date: 20100617
  Transmission Date: 20110831
  Serious: No
  Sender: FDA-Public Use
  Company Number: A0871312A

PATIENT
  Age: 50 Year
  Sex: Male

DRUGS (4)
  1. VALPROIC ACID [Concomitant]
  2. WELLBUTRIN XL [Suspect]
     Indication: MAJOR DEPRESSION
     Dosage: 150MG PER DAY
     Route: 048
     Dates: start: 20060901, end: 20100614
  3. CYMBALTA [Concomitant]
  4. MULTI-VITAMINS [Concomitant]

REACTIONS (8)
  - SERUM SEROTONIN DECREASED [None]
  - DEPRESSION [None]
  - SOMNOLENCE [None]
  - NEUROTRANSMITTER LEVEL ALTERED [None]
  - DRUG INEFFECTIVE [None]
  - DEPRESSIVE SYMPTOM [None]
  - FATIGUE [None]
  - PRODUCT QUALITY ISSUE [None]
